FAERS Safety Report 11491694 (Version 6)
Quarter: 2016Q1

REPORT INFORMATION
  Report Type: Spontaneous
  Country: US (occurrence: None)
  Receive Date: 20150910
  Receipt Date: 20160202
  Transmission Date: 20160525
  Serious: Yes (Other)
  Sender: FDA-Public Use
  Company Number: US-MDT-ADR-2015-01760

PATIENT
  Age: 57 Year
  Sex: Female

DRUGS (1)
  1. LIORESAL [Suspect]
     Active Substance: BACLOFEN
     Indication: MUSCLE SPASTICITY
     Dosage: 42.5 UCG/DAY

REACTIONS (7)
  - Intervertebral disc degeneration [None]
  - Burning sensation [None]
  - Muscle spasticity [None]
  - Cerebrospinal fluid leakage [None]
  - Paraesthesia [None]
  - Pain [None]
  - Post lumbar puncture syndrome [None]
